FAERS Safety Report 7639874-X (Version None)
Quarter: 2011Q3

REPORT INFORMATION
  Report Type: 
  Country: None (occurrence: None)
  Receive Date: 20110727
  Receipt Date: 20110719
  Transmission Date: 20111222
  Serious: Yes (Other)
  Sender: FDA-Public Use
  Company Number: GB-TEVA-291989ISR

PATIENT
  Age: 37 Year
  Sex: Female
  Weight: 106 kg

DRUGS (4)
  1. XOLAIR [Suspect]
     Indication: ASTHMA
     Route: 058
     Dates: start: 20091104, end: 20110501
  2. IPRATROPIUM BROMIDE [Suspect]
     Indication: ASTHMA
  3. SERETIDE [Suspect]
     Indication: ASTHMA
     Dates: start: 20050101
  4. MONTELUKAST SODIUM [Suspect]
     Route: 048
     Dates: start: 20070101

REACTIONS (5)
  - TRANSIENT ISCHAEMIC ATTACK [None]
  - HEADACHE [None]
  - DYSAESTHESIA [None]
  - SENSORY DISTURBANCE [None]
  - HEMIPARESIS [None]
